FAERS Safety Report 5116378-X (Version None)
Quarter: 2006Q3

REPORT INFORMATION
  Report Type: 
  Country: None (occurrence: None)
  Receive Date: 20060928
  Receipt Date: 20060919
  Transmission Date: 20061208
  Serious: Yes (Hospitalization, Other)
  Sender: FDA-Public Use
  Company Number: PHNU2006DE03177

PATIENT
  Age: 68 Year
  Sex: Female

DRUGS (5)
  1. DIOVAN [Suspect]
     Indication: HYPERTENSION
     Dosage: UNK, QD
     Route: 048
  2. TOREM [Concomitant]
  3. BELOC-ZOK [Concomitant]
  4. L-THYROXINE [Concomitant]
  5. HORMONES [Concomitant]

REACTIONS (2)
  - OEDEMA [None]
  - RADIOACTIVE IODINE THERAPY [None]
